FAERS Safety Report 4266071-0 (Version None)
Quarter: 2004Q1

REPORT INFORMATION
  Report Type: 
  Country: None (occurrence: None)
  Receive Date: 20040106
  Receipt Date: 20031226
  Transmission Date: 20041129
  Serious: Yes (Death)
  Sender: FDA-Public Use
  Company Number: JP-JNJFOC-20031205134

PATIENT
  Age: 72 Year
  Sex: Male

DRUGS (6)
  1. DUROTEP (FENTANYL) PATCH [Suspect]
     Indication: CANCER PAIN
     Dosage: 2.5 MG, 1 IN 3 DAY, TRANSDERMAL; 5 MG, 1 IN 3 DAY, TRANSDERMAL
     Route: 062
     Dates: start: 20031110, end: 20031119
  2. DUROTEP (FENTANYL) PATCH [Suspect]
     Indication: CANCER PAIN
     Dosage: 2.5 MG, 1 IN 3 DAY, TRANSDERMAL; 5 MG, 1 IN 3 DAY, TRANSDERMAL
     Route: 062
     Dates: start: 20031119, end: 20031121
  3. PN (UNKNOWN) ALL OTHER THERAPEUTIC PRODUCTS [Concomitant]
  4. NEOLAMIN MULTI V (NEOLAMIN MULTI V) [Concomitant]
  5. ELEMENMIC (ELEMENMIC) [Concomitant]
  6. TEICOPLANIN (TEICOPLANIN) [Concomitant]

REACTIONS (2)
  - LUNG NEOPLASM MALIGNANT [None]
  - MALIGNANT NEOPLASM PROGRESSION [None]
